FAERS Safety Report 9054293 (Version 3)
Quarter: 2013Q1

REPORT INFORMATION
  Report Type: Spontaneous
  Country: FR (occurrence: FR)
  Receive Date: 20130208
  Receipt Date: 20130301
  Transmission Date: 20140127
  Serious: Yes (Other)
  Sender: FDA-Public Use
  Company Number: FR-ABBOTT-13P-056-1045832-00

PATIENT
  Sex: Male

DRUGS (7)
  1. HUMIRA [Suspect]
     Indication: ANKYLOSING SPONDYLITIS
     Route: 058
     Dates: start: 20090926, end: 20111011
  2. NSAID^S [Suspect]
     Indication: ANKYLOSING SPONDYLITIS
     Dates: end: 2009
  3. NSAID^S [Suspect]
     Indication: ANKYLOSING SPONDYLITIS
  4. ALTEIS [Suspect]
     Indication: HYPERTENSION
     Dates: start: 2008, end: 20120911
  5. FELDENE [Suspect]
     Indication: ANKYLOSING SPONDYLITIS
     Dates: start: 2008
  6. FELDENE [Suspect]
     Dosage: DOSAGE DECREASED
  7. LERCAN [Suspect]
     Indication: HYPERTENSION

REACTIONS (7)
  - Renal failure [Recovered/Resolved]
  - Uveitis [Unknown]
  - Thrombocytopenia [Recovered/Resolved]
  - Renal impairment [Recovering/Resolving]
  - Proteinuria [Unknown]
  - Tubulointerstitial nephritis [Unknown]
  - Nephropathy toxic [Unknown]
